FAERS Safety Report 23871497 (Version 4)
Quarter: 2024Q2

REPORT INFORMATION
  Report Type: Report from Study
  Country: US (occurrence: US)
  Receive Date: 20240519
  Receipt Date: 20240629
  Transmission Date: 20240716
  Serious: Yes (Hospitalization, Other)
  Sender: FDA-Public Use
  Company Number: US-002147023-NVSC2024US103268

PATIENT
  Sex: Male

DRUGS (1)
  1. ENTRESTO [Suspect]
     Active Substance: SACUBITRIL\VALSARTAN
     Indication: Product used for unknown indication
     Dosage: 97 MG, BID
     Route: 048
     Dates: start: 20180329, end: 20231115

REACTIONS (8)
  - Incorrect dose administered [Unknown]
  - Sepsis [Unknown]
  - Heart rate increased [Unknown]
  - Nasopharyngitis [Unknown]
  - Pyrexia [Unknown]
  - White blood cell count abnormal [Unknown]
  - Neutrophil count decreased [Unknown]
  - Wrong technique in product usage process [Unknown]
